FAERS Safety Report 7729902-5 (Version None)
Quarter: 2011Q3

REPORT INFORMATION
  Report Type: 
  Country: None (occurrence: None)
  Receive Date: 20110906
  Receipt Date: 20110830
  Transmission Date: 20111222
  Serious: Yes (Life-Threatening, Other)
  Sender: FDA-Public Use
  Company Number: FR-ABBOTT-11P-056-0850088-00

PATIENT
  Sex: Female

DRUGS (9)
  1. SEVOFLURANE [Suspect]
     Indication: GENERAL ANAESTHESIA
     Route: 055
     Dates: start: 20110803, end: 20110803
  2. SEVOFLURANE [Suspect]
     Dates: start: 20110812, end: 20110812
  3. PROPOFOL [Suspect]
     Dates: start: 20110812, end: 20110812
  4. NEXIUM [Concomitant]
     Indication: PRODUCT USED FOR UNKNOWN INDICATION
  5. FUROSEMIDE [Concomitant]
     Indication: PRODUCT USED FOR UNKNOWN INDICATION
  6. ATARAX [Suspect]
     Indication: PRODUCT USED FOR UNKNOWN INDICATION
     Dates: end: 20110812
  7. PROPOFOL [Suspect]
     Indication: GENERAL ANAESTHESIA
     Route: 042
     Dates: start: 20110803, end: 20110803
  8. CAPTOPRIL [Suspect]
     Indication: PRODUCT USED FOR UNKNOWN INDICATION
     Route: 048
     Dates: end: 20110812
  9. ACETAMINOPHEN [Concomitant]
     Indication: PRODUCT USED FOR UNKNOWN INDICATION
     Dates: start: 20110801

REACTIONS (10)
  - HEPATIC FAILURE [None]
  - PROTHROMBIN LEVEL DECREASED [None]
  - DIARRHOEA [None]
  - ACUTE PULMONARY OEDEMA [None]
  - PYREXIA [None]
  - DEHYDRATION [None]
  - CYTOLYTIC HEPATITIS [None]
  - GASTROINTESTINAL HAEMORRHAGE [None]
  - STAPHYLOCOCCUS TEST POSITIVE [None]
  - COAGULATION FACTOR V LEVEL DECREASED [None]
